FAERS Safety Report 10241410 (Version 1)
Quarter: 2014Q2

REPORT INFORMATION
  Report Type: Spontaneous
  Country: US (occurrence: US)
  Receive Date: 20140617
  Receipt Date: 20140617
  Transmission Date: 20141212
  Serious: No
  Sender: FDA-Public Use
  Company Number: US-PFIZER INC-2014163366

PATIENT
  Age: 66 Year
  Sex: Female

DRUGS (7)
  1. MORPHINE SULFATE [Suspect]
     Dosage: UNK
  2. ENBREL [Suspect]
     Dosage: UNK
  3. METHOTREXATE [Suspect]
     Dosage: UNK
  4. REMICADE [Suspect]
     Dosage: UNK
  5. HUMIRA [Suspect]
     Dosage: UNK
  6. ORENCIA [Suspect]
     Dosage: UNK
  7. TRAMADOL [Suspect]
     Dosage: UNK

REACTIONS (1)
  - Drug hypersensitivity [Unknown]
